FAERS Safety Report 9929225 (Version 1)
Quarter: 2014Q1

REPORT INFORMATION
  Report Type: Spontaneous
  Country: FR (occurrence: FR)
  Receive Date: 20140227
  Receipt Date: 20140227
  Transmission Date: 20141002
  Serious: Yes (Other)
  Sender: FDA-Public Use
  Company Number: FR-TEVA-463418ISR

PATIENT
  Age: 61 Year
  Sex: Female

DRUGS (3)
  1. CLARITHROMYCINE TEVA 250 MG [Suspect]
     Indication: TONSILLITIS
     Dosage: 250 MILLIGRAM DAILY;
     Route: 048
     Dates: start: 20130315, end: 20130321
  2. ACETYLCYSTEINE [Concomitant]
     Indication: TONSILLITIS
     Dosage: 3 DOSAGE FORMS DAILY;
     Route: 048
     Dates: start: 20130315, end: 20130322
  3. PARACETAMOL [Concomitant]
     Indication: TONSILLITIS
     Dosage: 3 GRAM DAILY;
     Route: 048
     Dates: start: 20130315, end: 20130321

REACTIONS (4)
  - Hypogeusia [Not Recovered/Not Resolved]
  - Dysgeusia [Not Recovered/Not Resolved]
  - Hyposmia [Not Recovered/Not Resolved]
  - Dysgeusia [Unknown]
